FAERS Safety Report 25330439 (Version 1)
Quarter: 2025Q2

REPORT INFORMATION
  Report Type: Spontaneous
  Country: TR (occurrence: TR)
  Receive Date: 20250519
  Receipt Date: 20250519
  Transmission Date: 20250716
  Serious: Yes (Other)
  Sender: AMGEN
  Company Number: TR-PFIZER INC-PV202500056661

PATIENT
  Age: 53 Year
  Sex: Female

DRUGS (3)
  1. ENBREL [Suspect]
     Active Substance: ETANERCEPT
     Indication: Psoriatic arthropathy
     Route: 065
  2. IXEKIZUMAB [Concomitant]
     Active Substance: IXEKIZUMAB
  3. SECUKINUMAB [Concomitant]
     Active Substance: SECUKINUMAB

REACTIONS (2)
  - Compartment syndrome [Recovered/Resolved]
  - Peripheral swelling [Recovered/Resolved]
